FAERS Safety Report 9026694 (Version 2)
Quarter: 2013Q2

REPORT INFORMATION
  Report Type: Spontaneous
  Country: US (occurrence: None)
  Receive Date: 20120525
  Receipt Date: 20120827
  Transmission Date: 20140414
  Serious: Yes (Hospitalization, Other)
  Sender: FDA-Public Use
  Company Number: 348448

PATIENT
  Age: 49 Year
  Sex: Female
  Weight: 81.2 kg

DRUGS (11)
  1. VICTOZA (LIRAGLUTIDE) SOLUTION FOR INJECTION, 6 MG/ML [Suspect]
     Indication: TYPE 2 DIABETES MELLITUS
     Route: 058
     Dates: start: 2011, end: 201110
  2. NEXIUM (01479302) (ESOMEPRAZOLE MAGNESIUM) [Concomitant]
  3. SINGULAIR [Concomitant]
  4. KADIAN (MORPHINE SULFATE) [Concomitant]
  5. FLEXERIL (00428402) (CYCLOBENZAPRINE HYDROCHLORIDE) [Concomitant]
  6. RANITIDINE (RANITIDINE) [Concomitant]
  7. VERAPAMIL (VERAPAMIL) [Concomitant]
  8. COUMADIN (0014802) (WARFARIN SODIUM) [Concomitant]
  9. DIVALPROEX (VALPROATE SEMISODIUM) [Concomitant]
  10. RIDAURA (AURONOFIN) [Concomitant]
  11. LOSARTAN (LOSARTAN) [Concomitant]

REACTIONS (5)
  - Diarrhoea [None]
  - Dehydration [None]
  - Pyrexia [None]
  - Hypertension [None]
  - Hypotension [None]
